FAERS Safety Report 20229351 (Version 14)
Quarter: 2022Q3

REPORT INFORMATION
  Report Type: Spontaneous
  Country: FR (occurrence: FR)
  Receive Date: 20211225
  Receipt Date: 20220923
  Transmission Date: 20221027
  Serious: Yes (Hospitalization, Other)
  Sender: FDA-Public Use
  Company Number: FR-NOVARTISPH-NVSC2021FR286042

PATIENT
  Age: 69 Year
  Sex: Female
  Weight: 66 kg

DRUGS (23)
  1. AMOXICILLIN [Suspect]
     Active Substance: AMOXICILLIN
     Indication: Nasopharyngitis
     Dosage: 2 G, QD (FOR 7 DAYS)
     Route: 065
  2. AMOXICILLIN [Suspect]
     Active Substance: AMOXICILLIN
     Dosage: FOR 7 DAYS
     Route: 065
  3. LEVOFLOXACIN [Suspect]
     Active Substance: LEVOFLOXACIN
     Indication: Bronchitis
     Dosage: 500 (1 TABLET/D FOR 10 DAYS), 500 (1 TABLET/DAY UNTIL FRIDAY)
     Route: 065
  4. LEVOFLOXACIN [Suspect]
     Active Substance: LEVOFLOXACIN
     Dosage: 500 (1 TABLET/D FOR 10 DAYS), 500 (1 TABLET / DAY UNTIL FRIDAY)
     Route: 065
  5. SELEXIPAG [Suspect]
     Active Substance: SELEXIPAG
     Indication: Connective tissue disorder
     Dosage: 200 UG, BID
     Route: 065
     Dates: start: 20210721
  6. SELEXIPAG [Suspect]
     Active Substance: SELEXIPAG
     Indication: Pulmonary hypertension
     Dosage: 400 UG, BID
     Route: 065
     Dates: start: 20210728
  7. SELEXIPAG [Suspect]
     Active Substance: SELEXIPAG
     Dosage: 600 UG, BID
     Route: 065
     Dates: start: 20210804
  8. SELEXIPAG [Suspect]
     Active Substance: SELEXIPAG
     Dosage: 800 UG, BID
     Route: 065
     Dates: start: 20210902
  9. SELEXIPAG [Suspect]
     Active Substance: SELEXIPAG
     Dosage: 600 UG, BID
     Route: 065
     Dates: start: 20210906
  10. SELEXIPAG [Suspect]
     Active Substance: SELEXIPAG
     Dosage: 800 UG, BID
     Route: 065
     Dates: start: 20210916
  11. SELEXIPAG [Suspect]
     Active Substance: SELEXIPAG
     Dosage: 600 UG, BID
     Route: 065
     Dates: start: 20211116
  12. SELEXIPAG [Suspect]
     Active Substance: SELEXIPAG
     Dosage: 800 UG, BID
     Route: 065
     Dates: start: 20211214
  13. SELEXIPAG [Suspect]
     Active Substance: SELEXIPAG
     Dosage: 600 UG, BID
     Route: 065
     Dates: start: 20220110
  14. SELEXIPAG [Suspect]
     Active Substance: SELEXIPAG
     Dosage: 400 UG, BID
     Route: 065
     Dates: start: 20220207
  15. SELEXIPAG [Suspect]
     Active Substance: SELEXIPAG
     Dosage: 600 UG, BID
     Route: 065
     Dates: start: 20220217
  16. SELEXIPAG [Suspect]
     Active Substance: SELEXIPAG
     Dosage: 600 UG, BID
     Route: 065
     Dates: start: 20220721
  17. SELEXIPAG [Suspect]
     Active Substance: SELEXIPAG
     Dosage: 400 UG
     Route: 048
     Dates: start: 20220207
  18. SELEXIPAG [Suspect]
     Active Substance: SELEXIPAG
     Dosage: 600 UG
     Route: 048
     Dates: start: 20220110
  19. SELEXIPAG [Suspect]
     Active Substance: SELEXIPAG
     Dosage: 600 UG
     Route: 048
     Dates: start: 20220721
  20. SELEXIPAG [Suspect]
     Active Substance: SELEXIPAG
     Dosage: 600 UG
     Route: 048
     Dates: start: 20210906
  21. SELEXIPAG [Suspect]
     Active Substance: SELEXIPAG
     Dosage: 800 UG
     Route: 048
     Dates: start: 20210902
  22. SELEXIPAG [Suspect]
     Active Substance: SELEXIPAG
     Dosage: 600 UG
     Route: 048
     Dates: start: 20211116
  23. SELEXIPAG [Suspect]
     Active Substance: SELEXIPAG
     Dosage: 200 UG
     Route: 048
     Dates: start: 20210721

REACTIONS (28)
  - Pulmonary arterial hypertension [Unknown]
  - Pericardial effusion [Unknown]
  - Intra-abdominal fluid collection [Unknown]
  - Angina pectoris [Not Recovered/Not Resolved]
  - Headache [Not Recovered/Not Resolved]
  - Insomnia [Not Recovered/Not Resolved]
  - Dyspnoea exertional [Not Recovered/Not Resolved]
  - Constipation [Not Recovered/Not Resolved]
  - Performance status decreased [Not Recovered/Not Resolved]
  - Abdominal pain [Not Recovered/Not Resolved]
  - Myalgia [Not Recovered/Not Resolved]
  - Vertigo [Unknown]
  - Nasopharyngitis [Not Recovered/Not Resolved]
  - Somnolence [Not Recovered/Not Resolved]
  - Bronchitis [Recovering/Resolving]
  - Pain in jaw [Not Recovered/Not Resolved]
  - Gastroenteritis [Recovered/Resolved]
  - Gastrooesophageal reflux disease [Recovering/Resolving]
  - Dizziness [Recovered/Resolved]
  - Fatigue [Not Recovered/Not Resolved]
  - Nausea [Recovered/Resolved]
  - Abdominal distension [Recovered/Resolved]
  - Diarrhoea [Not Recovered/Not Resolved]
  - Tachycardia [Unknown]
  - Anaemia [Unknown]
  - Injection site pain [Not Recovered/Not Resolved]
  - Product use in unapproved indication [Unknown]
  - Off label use [Unknown]

NARRATIVE: CASE EVENT DATE: 20210807
